FAERS Safety Report 17445473 (Version 1)
Quarter: 2020Q1

REPORT INFORMATION
  Report Type: Other
  Country: None (occurrence: US)
  Receive Date: 20200221
  Receipt Date: 20200221
  Transmission Date: 20200409
  Serious: Yes (Hospitalization)
  Sender: FDA-Public Use
  Company Number: US-WELLS PHARMACY NETWORK LLC.-2080754

PATIENT
  Sex: Female

DRUGS (3)
  1. TESTOSTERONE. [Suspect]
     Active Substance: TESTOSTERONE
     Route: 058
  2. TESTOSTERONE. [Suspect]
     Active Substance: TESTOSTERONE
     Route: 058
  3. ESTRADIOL 6 MG [Suspect]
     Active Substance: ESTRADIOL
     Route: 058

REACTIONS (1)
  - Implant site reaction [Recovered/Resolved]
